FAERS Safety Report 7111011-X (Version None)
Quarter: 2010Q4

REPORT INFORMATION
  Report Type: 
  Country: None (occurrence: None)
  Receive Date: 20101118
  Receipt Date: 20101115
  Transmission Date: 20110411
  Serious: Yes (Hospitalization)
  Sender: FDA-Public Use
  Company Number: FR-MERCK-1011FRA00030

PATIENT
  Age: 78 Year
  Sex: Male
  Weight: 88 kg

DRUGS (6)
  1. JANUVIA [Suspect]
     Indication: TYPE 2 DIABETES MELLITUS
     Route: 048
     Dates: start: 20100208
  2. REPAGLINIDE [Concomitant]
     Indication: TYPE 2 DIABETES MELLITUS
     Route: 048
     Dates: start: 20050101, end: 20100628
  3. REPAGLINIDE [Concomitant]
     Route: 048
     Dates: start: 20100629
  4. INSULIN GLARGINE [Concomitant]
     Indication: TYPE 2 DIABETES MELLITUS
     Route: 058
     Dates: start: 20100422
  5. INSULIN GLARGINE [Concomitant]
     Route: 058
     Dates: start: 20100629
  6. INSULIN GLARGINE [Concomitant]
     Route: 058
     Dates: start: 20100511, end: 20100628

REACTIONS (1)
  - DIABETES MELLITUS INADEQUATE CONTROL [None]
